FAERS Safety Report 10526910 (Version 2)
Quarter: 2014Q4

REPORT INFORMATION
  Report Type: Spontaneous
  Country: JP (occurrence: JP)
  Receive Date: 20141020
  Receipt Date: 20141103
  Transmission Date: 20150528
  Serious: No
  Sender: FDA-Public Use
  Company Number: JP-ROCHE-1476003

PATIENT
  Age: 35 Year
  Sex: Male

DRUGS (8)
  1. DENOSINE [Suspect]
     Active Substance: GANCICLOVIR
     Indication: CYTOMEGALOVIRUS ENTEROCOLITIS
     Route: 041
     Dates: start: 20140912, end: 20140916
  2. OMEPRAZOLE. [Suspect]
     Active Substance: OMEPRAZOLE
     Indication: PANCREATITIS ACUTE
     Route: 042
     Dates: start: 20140703, end: 20140915
  3. MIYA-BM [Suspect]
     Active Substance: CLOSTRIDIUM BUTYRICUM SPORES STRAIN M-55
     Indication: DIARRHOEA
     Route: 048
     Dates: start: 20140910
  4. CEFMETAZOLE [Suspect]
     Active Substance: CEFMETAZOLE
     Indication: PERITONITIS BACTERIAL
     Route: 042
     Dates: start: 20140710, end: 20140915
  5. FAMOTIDINE. [Concomitant]
     Active Substance: FAMOTIDINE
     Route: 065
     Dates: start: 20140915
  6. ZITHROMAC [Concomitant]
     Active Substance: AZITHROMYCIN DIHYDRATE
  7. CALONAL [Suspect]
     Active Substance: ACETAMINOPHEN
     Indication: PYREXIA
     Route: 048
     Dates: start: 20140915, end: 20140927
  8. FOSCAVIR [Concomitant]
     Active Substance: FOSCARNET SODIUM
     Route: 065
     Dates: start: 20140916

REACTIONS (3)
  - Liver disorder [Recovering/Resolving]
  - Aspartate aminotransferase increased [Unknown]
  - Alanine aminotransferase increased [Unknown]

NARRATIVE: CASE EVENT DATE: 20140916
